FAERS Safety Report 6419587-2 (Version None)
Quarter: 2009Q4

REPORT INFORMATION
  Report Type: 
  Country: None (occurrence: None)
  Receive Date: 20091013
  Receipt Date: 20090721
  Transmission Date: 20100525
  Serious: No
  Sender: FDA-Public Use
  Company Number: 2009BM000165

PATIENT
  Age: 24 Month
  Sex: Male
  Weight: 14.3 kg

DRUGS (2)
  1. KUVAN [Suspect]
     Indication: PHENYLKETONURIA
     Dosage: 10 MG/KG;QD;PO : 14 MG/KG;QD;PO
     Route: 048
     Dates: end: 20090721
  2. KUVAN [Suspect]
     Indication: PHENYLKETONURIA
     Dosage: 10 MG/KG;QD;PO : 14 MG/KG;QD;PO
     Route: 048
     Dates: start: 20090714

REACTIONS (5)
  - BRUXISM [None]
  - COUGH [None]
  - DECREASED APPETITE [None]
  - HYPOPHAGIA [None]
  - INSOMNIA [None]
